FAERS Safety Report 5614402-9 (Version None)
Quarter: 2008Q1

REPORT INFORMATION
  Report Type: 
  Country: None (occurrence: None)
  Receive Date: 20080205
  Receipt Date: 20080124
  Transmission Date: 20080703
  Serious: Yes (Other)
  Sender: FDA-Public Use
  Company Number: US-PFIZER INC-2008008857

PATIENT
  Sex: Male
  Weight: 104.3 kg

DRUGS (5)
  1. CHANTIX [Suspect]
     Indication: SMOKING CESSATION THERAPY
     Route: 048
  2. NOVOLOG [Concomitant]
  3. INSULIN DETEMIR [Concomitant]
  4. MOTRIN [Concomitant]
     Route: 048
  5. TYLENOL EXTRA-STRENGTH [Concomitant]
     Route: 048

REACTIONS (3)
  - ARTHRALGIA [None]
  - DYSSTASIA [None]
  - JOINT SWELLING [None]
